FAERS Safety Report 4447848-5 (Version None)
Quarter: 2004Q3

REPORT INFORMATION
  Report Type: 
  Country: None (occurrence: None)
  Receive Date: 20040819
  Receipt Date: 20040422
  Transmission Date: 20050211
  Serious: Yes (Other)
  Sender: FDA-Public Use
  Company Number: PHEH2004US04513

PATIENT
  Age: 66 Year
  Sex: Male

DRUGS (8)
  1. LOTENSIN [Suspect]
     Indication: HYPERTENSION
     Dosage: 20 MG, QD
     Dates: start: 20040122
  2. ASPIRIN [Concomitant]
  3. ZOCOR [Concomitant]
  4. COREG [Concomitant]
  5. COUMADIN [Concomitant]
  6. DIGOXIN [Concomitant]
  7. LASIX                      /SCH/ (FUROSEMIDE SODIUM) [Concomitant]
  8. POTASSIUM (POTASSIUM) [Concomitant]

REACTIONS (1)
  - BLOOD GLUCOSE INCREASED [None]
